FAERS Safety Report 9385939 (Version 2)
Quarter: 2013Q3

REPORT INFORMATION
  Report Type: Spontaneous
  Country: JP (occurrence: JP)
  Receive Date: 20130705
  Receipt Date: 20130719
  Transmission Date: 20140515
  Serious: Yes (Hospitalization)
  Sender: FDA-Public Use
  Company Number: JP-MERCK-1307JPN001088

PATIENT
  Age: 76 Year
  Sex: Female

DRUGS (3)
  1. GLACTIV [Suspect]
     Indication: TYPE 2 DIABETES MELLITUS
     Dosage: 50 MG, QD (TABLETS 25 MG, 50 MG, 100 MG)
     Route: 048
     Dates: start: 20110909
  2. LIPITOR [Concomitant]
     Dosage: UNK
     Dates: start: 200010
  3. EUGLUCON [Concomitant]
     Dosage: UNK
     Dates: start: 20070912

REACTIONS (2)
  - Cholecystitis [Recovered/Resolved]
  - Intraductal papillary mucinous neoplasm [Recovered/Resolved]
